FAERS Safety Report 8150054-4 (Version None)
Quarter: 2012Q1

REPORT INFORMATION
  Report Type: 
  Country: None (occurrence: None)
  Receive Date: 20120219
  Receipt Date: 20120208
  Transmission Date: 20120608
  Serious: Yes (Other)
  Sender: FDA-Public Use
  Company Number: FR-BRISTOL-MYERS SQUIBB COMPANY-16313454

PATIENT
  Age: 65 Year
  Sex: Male

DRUGS (12)
  1. ERBITUX [Suspect]
     Indication: COLORECTAL CANCER METASTATIC
     Dosage: 14-14NV2011:400MG/M2,INTERRUPTED ON 14NOV11,28NOV11 28-28NV2011:250MG/M2,RESTARTED
     Route: 042
     Dates: start: 20111114
  2. BISOPROLOL FUMARATE [Concomitant]
  3. LEVOTHYROXINE SODIUM [Concomitant]
  4. ATORVASTATIN [Concomitant]
  5. ASPIRIN [Concomitant]
  6. AMIKACIN [Suspect]
     Indication: LUNG INFECTION
     Dates: end: 20111212
  7. IRINOTECAN HCL [Suspect]
     Indication: COLORECTAL CANCER METASTATIC
     Dosage: SOLN FOR INJ; 14-14NV2011 28-28NV2011
     Route: 042
     Dates: start: 20111114, end: 20111128
  8. FLUOROURACIL [Suspect]
     Indication: COLORECTAL CANCER METASTATIC
     Dosage: SOLN FOR INJ; 14-14NV2011 28-28NV2011
     Route: 042
     Dates: start: 20111114, end: 20111128
  9. AUGMENTIN '125' [Suspect]
     Indication: LUNG INFECTION
     Dates: end: 20111212
  10. PERINDOPRIL ERBUMINE [Concomitant]
  11. LEVOFLOXACIN [Suspect]
     Indication: LUNG INFECTION
     Dates: end: 20111212
  12. PROSCAR [Concomitant]

REACTIONS (2)
  - NEPHROTIC SYNDROME [None]
  - RASH [None]
